FAERS Safety Report 17731804 (Version 4)
Quarter: 2020Q2

REPORT INFORMATION
  Report Type: Spontaneous
  Country: CN (occurrence: CN)
  Receive Date: 20200501
  Receipt Date: 20200605
  Transmission Date: 20200714
  Serious: Yes (Hospitalization, Other)
  Sender: FDA-Public Use
  Company Number: CN-ASTRAZENECA-2020SE56718

PATIENT
  Age: 20724 Day
  Sex: Male
  Weight: 50 kg

DRUGS (2)
  1. NEXIUM [Suspect]
     Active Substance: ESOMEPRAZOLE MAGNESIUM
     Indication: GASTRITIS
     Dosage: 1 DF BEFORE GOING TO BED
     Route: 048
     Dates: start: 20200327, end: 20200407
  2. SUCRALFATE. [Concomitant]
     Active Substance: SUCRALFATE
     Indication: GASTRITIS HAEMORRHAGIC
     Dosage: ONCE IN THE MORNING AND ONCE IN THE EVENING
     Dates: start: 20200327

REACTIONS (17)
  - Chest pain [Not Recovered/Not Resolved]
  - Genitals enlarged [Recovering/Resolving]
  - Oedema peripheral [Recovering/Resolving]
  - Feeding disorder [Unknown]
  - Gastric haemorrhage [Not Recovered/Not Resolved]
  - Haematoma [Unknown]
  - Hyperplasia [Not Recovered/Not Resolved]
  - Abdominal pain [Not Recovered/Not Resolved]
  - Vomiting [Not Recovered/Not Resolved]
  - Back pain [Not Recovered/Not Resolved]
  - Dysuria [Not Recovered/Not Resolved]
  - Lymphadenopathy [Not Recovered/Not Resolved]
  - Generalised oedema [Unknown]
  - Renal disorder [Unknown]
  - Mouth ulceration [Not Recovered/Not Resolved]
  - Gastrointestinal neoplasm [Not Recovered/Not Resolved]
  - Vasodilatation [Not Recovered/Not Resolved]

NARRATIVE: CASE EVENT DATE: 20200406
